FAERS Safety Report 12920437 (Version 1)
Quarter: 2016Q4

REPORT INFORMATION
  Report Type: Spontaneous
  Country: US (occurrence: US)
  Receive Date: 20161107
  Receipt Date: 20161107
  Transmission Date: 20170207
  Serious: No
  Sender: FDA-Public Use
  Company Number: US-TORRENT-00001279

PATIENT
  Age: 55 Year
  Sex: Female
  Weight: 79 kg

DRUGS (4)
  1. VENLAFAXINE [Suspect]
     Active Substance: VENLAFAXINE HYDROCHLORIDE
     Indication: DEPRESSION
     Dosage: ONCE A DAY?
     Dates: start: 2014, end: 201503
  2. NEXIUM [Concomitant]
     Active Substance: ESOMEPRAZOLE MAGNESIUM
     Indication: GASTROOESOPHAGEAL REFLUX DISEASE
     Dosage: ONCE A DAY
     Route: 048
     Dates: end: 2015
  3. VENLAFAXINE [Suspect]
     Active Substance: VENLAFAXINE HYDROCHLORIDE
     Indication: DEPRESSION
     Dosage: ONCE A DAY
     Dates: start: 201504, end: 201607
  4. GENERIC PEPCID [Concomitant]
     Indication: GASTROOESOPHAGEAL REFLUX DISEASE
     Dosage: ONCE A DAY
     Route: 048

REACTIONS (6)
  - Mood swings [Recovered/Resolved]
  - Product substitution issue [Unknown]
  - Malaise [Recovered/Resolved]
  - Depersonalisation/derealisation disorder [Recovered/Resolved]
  - Withdrawal syndrome [Recovered/Resolved]
  - Hot flush [Unknown]

NARRATIVE: CASE EVENT DATE: 201412
